FAERS Safety Report 7600029-6 (Version None)
Quarter: 2011Q3

REPORT INFORMATION
  Report Type: 
  Country: None (occurrence: None)
  Receive Date: 20110711
  Receipt Date: 20110701
  Transmission Date: 20111222
  Serious: Yes (Hospitalization, Other)
  Sender: FDA-Public Use
  Company Number: US-JNJFOC-20110306457

PATIENT
  Sex: Female

DRUGS (18)
  1. DOXIL [Suspect]
     Indication: OVARIAN CANCER
     Dosage: DOXORUBICIN HYDROCHLORIDE WAS DELAYED
     Route: 042
     Dates: start: 20100623
  2. ASPIRIN [Concomitant]
     Indication: ABDOMINAL PAIN
     Route: 065
     Dates: start: 20100623
  3. MORPHINE SULFATE [Concomitant]
     Indication: ABDOMINAL PAIN
     Route: 065
     Dates: start: 20100628, end: 20100629
  4. IMIPRAMINE [Concomitant]
     Indication: DEPRESSION
     Route: 065
     Dates: start: 20100623
  5. PROMETHAZINE [Concomitant]
     Route: 065
     Dates: start: 20100709, end: 20100715
  6. POLYETHYLENE GLYCOL [Concomitant]
     Indication: CONSTIPATION
     Route: 048
     Dates: start: 20100628
  7. PREGABALIN [Concomitant]
     Indication: NEUROPATHY PERIPHERAL
     Route: 065
     Dates: start: 20100628
  8. ONDANSETRON [Concomitant]
     Indication: VOMITING
     Dosage: 4 MG AS REQUIRED  4 MG ONCE
     Route: 065
     Dates: start: 20100628, end: 20100629
  9. PROMETHAZINE [Concomitant]
     Indication: VOMITING
     Route: 065
     Dates: start: 20100628, end: 20100629
  10. ONDANSETRON [Concomitant]
     Indication: NAUSEA
     Dosage: 4 MG AS REQUIRED  4 MG ONCE
     Route: 065
     Dates: start: 20100628, end: 20100629
  11. PROMETHAZINE [Concomitant]
     Route: 065
     Dates: start: 20100709, end: 20100715
  12. PROMETHAZINE [Concomitant]
     Indication: NAUSEA
     Route: 065
     Dates: start: 20100628, end: 20100629
  13. DOCUSATE SODIUM [Concomitant]
     Indication: CONSTIPATION
     Route: 065
     Dates: start: 20100628
  14. INTRAVENOUS FLUIDS [Concomitant]
     Indication: ELECTROLYTE SUBSTITUTION THERAPY
     Route: 042
     Dates: start: 20100628, end: 20100629
  15. LEVOFLOXACIN [Suspect]
     Indication: URINARY TRACT INFECTION
     Route: 065
     Dates: start: 20100621
  16. MAGNESIUM OXIDE [Concomitant]
     Indication: CONSTIPATION
     Route: 048
     Dates: start: 20100628
  17. NABUMETONE [Concomitant]
     Indication: PSORIATIC ARTHROPATHY
     Route: 065
     Dates: start: 20100623, end: 20100928
  18. GLUTAMIC ACID [Concomitant]
     Indication: PARENTERAL NUTRITION
     Route: 065
     Dates: start: 20100619

REACTIONS (8)
  - OESOPHAGEAL ULCER [None]
  - NAUSEA [None]
  - PYREXIA [None]
  - STOMATITIS [None]
  - VOMITING [None]
  - COUGH [None]
  - HIATUS HERNIA [None]
  - MALAISE [None]
